FAERS Safety Report 4980693-0 (Version None)
Quarter: 2006Q2

REPORT INFORMATION
  Report Type: 
  Country: None (occurrence: None)
  Receive Date: 20060424
  Receipt Date: 20050908
  Transmission Date: 20061013
  Serious: Yes (Hospitalization, Disabling)
  Sender: FDA-Public Use
  Company Number: US-MERCK-0509USA01194

PATIENT
  Age: 55 Year
  Sex: Female
  Weight: 24 kg

DRUGS (2)
  1. VIOXX [Suspect]
     Indication: NECK PAIN
     Route: 048
     Dates: start: 20030424, end: 20040901
  2. VIOXX [Suspect]
     Indication: PAIN
     Route: 048
     Dates: start: 20030424, end: 20040901

REACTIONS (16)
  - ANHEDONIA [None]
  - ANXIETY [None]
  - BRONCHITIS [None]
  - CARDIOMEGALY [None]
  - HEART RATE IRREGULAR [None]
  - IMPETIGO [None]
  - INJURY [None]
  - MITRAL VALVE INCOMPETENCE [None]
  - NIGHT SWEATS [None]
  - PAIN [None]
  - PAIN IN EXTREMITY [None]
  - PYELONEPHRITIS [None]
  - RHINITIS ALLERGIC [None]
  - TINEA PEDIS [None]
  - TRICUSPID VALVE INCOMPETENCE [None]
  - VENTRICULAR HYPERTROPHY [None]
